FAERS Safety Report 14184248 (Version 1)
Quarter: 2017Q4

REPORT INFORMATION
  Report Type: Spontaneous
  Country: US (occurrence: US)
  Receive Date: 20171113
  Receipt Date: 20171113
  Transmission Date: 20180321
  Serious: No
  Sender: FDA-Public Use
  Company Number: US-ALLERGAN-1709965US

PATIENT
  Sex: Male
  Weight: 75.74 kg

DRUGS (2)
  1. RAPAFLO [Suspect]
     Active Substance: SILODOSIN
     Indication: URINARY INCONTINENCE
  2. RAPAFLO [Suspect]
     Active Substance: SILODOSIN
     Indication: URINARY RETENTION
     Dosage: 8 MG, QD
     Route: 048
     Dates: start: 2015

REACTIONS (3)
  - Pollakiuria [Recovered/Resolved]
  - Drug dispensing error [Unknown]
  - Drug ineffective [Unknown]
